FAERS Safety Report 4277850-8 (Version None)
Quarter: 2004Q1

REPORT INFORMATION
  Report Type: 
  Country: None (occurrence: None)
  Receive Date: 20040122
  Receipt Date: 20031104
  Transmission Date: 20041129
  Serious: Yes (Other)
  Sender: FDA-Public Use
  Company Number: 000130

PATIENT
  Age: 48 Year
  Sex: Female
  Weight: 113.4 kg

DRUGS (6)
  1. TREXALL [Suspect]
     Indication: SYSTEMIC LUPUS ERYTHEMATOSUS
     Dosage: 15 MG, 1/WEEK. ORAL
     Route: 048
     Dates: start: 20030501, end: 20030901
  2. PLAQUENIL [Concomitant]
  3. CELEBREX [Concomitant]
  4. PROZAC [Concomitant]
  5. FOLIC ACID [Concomitant]
  6. PREDNISONE [Concomitant]

REACTIONS (8)
  - ABSCESS [None]
  - AXILLARY MASS [None]
  - CYST [None]
  - IMPAIRED HEALING [None]
  - MYCOBACTERIUM AVIUM COMPLEX INFECTION [None]
  - PAIN [None]
  - SKIN ULCER [None]
  - WOUND [None]
